FAERS Safety Report 18383872 (Version 1)
Quarter: 2020Q4

REPORT INFORMATION
  Report Type: Spontaneous
  Country: GB (occurrence: GB)
  Receive Date: 20201014
  Receipt Date: 20201014
  Transmission Date: 20210114
  Serious: Yes (Hospitalization)
  Sender: FDA-Public Use
  Company Number: GB-PERRIGO-20GB014272

PATIENT
  Age: 75 Year
  Sex: Female

DRUGS (6)
  1. LONGTEC [Concomitant]
     Active Substance: OXYCODONE HYDROCHLORIDE
     Indication: PRODUCT USED FOR UNKNOWN INDICATION
     Route: 048
  2. LONGTEC [Concomitant]
     Active Substance: OXYCODONE HYDROCHLORIDE
     Dosage: 10 MG
     Route: 048
  3. DOMPERIDONE [Concomitant]
     Active Substance: DOMPERIDONE
     Indication: PRODUCT USED FOR UNKNOWN INDICATION
     Dosage: TAKEN UP TO 3 TIMES A DAY. MAXIMUM 3 IN 24 HOURS.
     Route: 048
  4. ESOMEPRAZOLE. [Suspect]
     Active Substance: ESOMEPRAZOLE MAGNESIUM
     Indication: PRODUCT USED FOR UNKNOWN INDICATION
     Route: 048
  5. PERINDOPRIL [Concomitant]
     Active Substance: PERINDOPRIL
     Indication: PRODUCT USED FOR UNKNOWN INDICATION
     Route: 048
  6. OXYCODONE [Concomitant]
     Active Substance: OXYCODONE
     Indication: BREAKTHROUGH PAIN
     Dosage: UPTO 4 HOURLY
     Route: 048

REACTIONS (1)
  - Hypomagnesaemia [Unknown]
